FAERS Safety Report 8532163-0 (Version None)
Quarter: 2012Q3

REPORT INFORMATION
  Report Type: 
  Country: None (occurrence: None)
  Receive Date: 20120723
  Receipt Date: 20120716
  Transmission Date: 20120928
  Serious: Yes (Death, Life-Threatening, Hospitalization)
  Sender: FDA-Public Use
  Company Number: DK-GLAXOSMITHKLINE-B0761507A

PATIENT
  Sex: Female

DRUGS (5)
  1. UNKNOWN DRUG [Concomitant]
  2. ARIXTRA [Suspect]
     Indication: ACUTE MYOCARDIAL INFARCTION
     Dosage: 2.5MG PER DAY
     Route: 058
     Dates: start: 20111021
  3. MAGNYL [Concomitant]
     Indication: PRODUCT USED FOR UNKNOWN INDICATION
     Route: 065
     Dates: end: 20111030
  4. PENICILLIN [Concomitant]
     Indication: PNEUMONIA
     Route: 065
     Dates: start: 20111022
  5. WARFARIN SODIUM [Concomitant]
     Indication: PRODUCT USED FOR UNKNOWN INDICATION
     Route: 065

REACTIONS (10)
  - INTRA-ABDOMINAL HAEMORRHAGE [None]
  - PYREXIA [None]
  - ABDOMINAL PAIN [None]
  - MUSCLE HAEMORRHAGE [None]
  - HAEMATOMA [None]
  - ANURIA [None]
  - HAEMOGLOBIN DECREASED [None]
  - SLOW RESPONSE TO STIMULI [None]
  - RENAL IMPAIRMENT [None]
  - CARDIOVASCULAR DISORDER [None]
